FAERS Safety Report 7747322-4 (Version None)
Quarter: 2011Q3

REPORT INFORMATION
  Report Type: 
  Country: None (occurrence: None)
  Receive Date: 20110913
  Receipt Date: 20110907
  Transmission Date: 20111222
  Serious: Yes (Hospitalization)
  Sender: FDA-Public Use
  Company Number: JP-BRISTOL-MYERS SQUIBB COMPANY-15429277

PATIENT
  Age: 80 Year
  Sex: Female
  Weight: 41 kg

DRUGS (24)
  1. LORCAM [Concomitant]
     Indication: RHEUMATOID ARTHRITIS
  2. STROCAIN [Concomitant]
  3. ASPIRIN [Concomitant]
  4. CRESTOR [Concomitant]
  5. RED BLOOD CELLS [Concomitant]
  6. VOLTAREN [Concomitant]
     Indication: RHEUMATOID ARTHRITIS
     Dosage: VOLATREN SUPPO
  7. AMLODIPINE [Concomitant]
  8. SODIUM ALGINATE [Concomitant]
  9. GLUFAST [Concomitant]
  10. SULFASALAZINE [Concomitant]
  11. RABEPRAZOLE SODIUM [Concomitant]
  12. CANDESARTAN CILEXETIL [Concomitant]
  13. NEUER [Concomitant]
  14. ZOLPIDEM [Concomitant]
  15. METHYCOBAL [Concomitant]
     Indication: RHEUMATOID ARTHRITIS
  16. CYTOTEC [Concomitant]
  17. LASIX [Concomitant]
  18. ACTOS [Concomitant]
  19. ORENCIA [Suspect]
     Dosage: LAST DOSE RECEIVED ON 13APR11
     Route: 042
     Dates: start: 20101201
  20. PREDNISOLONE [Concomitant]
     Indication: RHEUMATOID ARTHRITIS
     Route: 048
  21. METHYCOBAL [Concomitant]
  22. MIZORIBINE [Concomitant]
  23. BONOTEO [Concomitant]
  24. METHYCOBAL [Concomitant]

REACTIONS (2)
  - ANAEMIA [None]
  - DISLOCATION OF VERTEBRA [None]
